FAERS Safety Report 20832219 (Version 1)
Quarter: 2022Q2

REPORT INFORMATION
  Report Type: Spontaneous
  Country: US (occurrence: US)
  Receive Date: 20220516
  Receipt Date: 20220516
  Transmission Date: 20220721
  Serious: No
  Sender: FDA-Public Use
  Company Number: US-BRISTOL-MYERS SQUIBB COMPANY-2022-023260

PATIENT
  Age: 71 Year
  Sex: Female
  Weight: 74.84 kg

DRUGS (8)
  1. REVLIMID [Suspect]
     Active Substance: LENALIDOMIDE
     Indication: Plasma cell myeloma
     Dosage: 14 DAYS ON / 7  OFF
     Route: 048
     Dates: start: 20220301
  2. ACYCLOVIR ORAL TABLET [Concomitant]
     Indication: Product used for unknown indication
     Route: 048
     Dates: start: 20220223
  3. DEXAMETHASONE ORAL TABLET [Concomitant]
     Indication: Product used for unknown indication
     Route: 048
     Dates: start: 20220223
  4. NORCO ORAL TABLET [Concomitant]
     Indication: Product used for unknown indication
     Route: 048
     Dates: start: 20220223
  5. CYCLOBENZAPRINE HYDROCHLORIDE [Concomitant]
     Active Substance: CYCLOBENZAPRINE HYDROCHLORIDE
     Indication: Product used for unknown indication
     Route: 048
     Dates: start: 20220223
  6. BENADRYL ALLERGY ORAL TABLET [Concomitant]
     Indication: Product used for unknown indication
     Route: 048
     Dates: start: 20220223
  7. FAMOTIDINE ORAL TABLET [Concomitant]
     Indication: Product used for unknown indication
     Route: 048
     Dates: start: 20220223
  8. LASIX ORAL TABLET [Concomitant]
     Indication: Product used for unknown indication
     Route: 048

REACTIONS (1)
  - Oedema [Unknown]

NARRATIVE: CASE EVENT DATE: 20220408
